FAERS Safety Report 5125378-5 (Version None)
Quarter: 2006Q4

REPORT INFORMATION
  Report Type: 
  Country: None (occurrence: None)
  Receive Date: 20061011
  Receipt Date: 20060927
  Transmission Date: 20070319
  Serious: Yes (Other)
  Sender: FDA-Public Use
  Company Number: PHBS2006JP15187

PATIENT
  Age: 58 Year
  Sex: Male

DRUGS (3)
  1. GLEEVEC [Suspect]
     Indication: ACUTE MYELOID LEUKAEMIA
     Dosage: 600 MG/D
     Route: 048
     Dates: start: 20050901, end: 20050922
  2. GLEEVEC [Suspect]
     Dosage: 600 MG/D
     Route: 048
     Dates: start: 20051010, end: 20051026
  3. GLEEVEC [Suspect]
     Dosage: 400 MG/D
     Dates: start: 20051104

REACTIONS (1)
  - HAEMATEMESIS [None]
